FAERS Safety Report 6768741-9 (Version None)
Quarter: 2010Q2

REPORT INFORMATION
  Report Type: 
  Country: None (occurrence: None)
  Receive Date: 20100611
  Receipt Date: 20100528
  Transmission Date: 20101027
  Serious: Yes (Hospitalization)
  Sender: FDA-Public Use
  Company Number: KV201000104

PATIENT
  Age: 55 Year
  Sex: Female
  Weight: 107.4 kg

DRUGS (22)
  1. MORPHINE SULFATE [Suspect]
     Indication: DRUG USE FOR UNKNOWN INDICATION
     Dosage: 15 MG, ORAL
     Route: 048
     Dates: start: 20081007, end: 20080101
  2. LORAZEPAM [Concomitant]
  3. ABILIFY [Concomitant]
  4. LIPITOR [Concomitant]
  5. PREVACID [Concomitant]
  6. LEVOTHYROXINE SODIUM [Concomitant]
  7. FLUOXETINE [Concomitant]
  8. ACETAMINOPHEN W/ PROPOXYPHENE HCL [Concomitant]
  9. OXYCODONE HCL [Concomitant]
  10. DIAZEPAM [Concomitant]
  11. HYDROCODONE BITARTRATE AND ACETAMINOPHEN (HYDROCODONE BITARTRATE, PARA [Concomitant]
  12. AVANDAMET [Concomitant]
  13. DETROL LA [Concomitant]
  14. AMLODIPINE BESYLATE W/BENAZEPRIL (AMLODIPINE BESILATE, BENAZEPRIL) [Concomitant]
  15. ZANAFLEX [Concomitant]
  16. RESTORIL /00393701/ (TEMAZEPAM) [Concomitant]
  17. BENADRYL [Concomitant]
  18. CYCLOBENZAPRINE [Concomitant]
  19. PREDNISONE TAB [Concomitant]
  20. PEPCID /00706001/ (FAMOTIDINE) [Concomitant]
  21. VISTARIL /00058402/ (HYDROXYZINE HYDROCHLORIDE) [Concomitant]
  22. CLONAZEPAM [Concomitant]

REACTIONS (37)
  - ABDOMINAL PAIN [None]
  - ACUTE RESPIRATORY FAILURE [None]
  - APHASIA [None]
  - ASTHENIA [None]
  - BACK PAIN [None]
  - BIPOLAR DISORDER [None]
  - CONFUSIONAL STATE [None]
  - CONSTIPATION [None]
  - COUGH [None]
  - DIARRHOEA [None]
  - DIZZINESS [None]
  - DRUG INEFFECTIVE [None]
  - DYSPNOEA [None]
  - HAEMORRHOID OPERATION [None]
  - HEADACHE [None]
  - HYPERHIDROSIS [None]
  - HYPOKALAEMIA [None]
  - HYPOTENSION [None]
  - HYPOXIC ENCEPHALOPATHY [None]
  - LETHARGY [None]
  - MEMORY IMPAIRMENT [None]
  - MENTAL STATUS CHANGES [None]
  - METABOLIC ENCEPHALOPATHY [None]
  - MICROCYTIC ANAEMIA [None]
  - MIOSIS [None]
  - MUSCULOSKELETAL PAIN [None]
  - NECK PAIN [None]
  - OVERDOSE [None]
  - PAIN [None]
  - PALLOR [None]
  - PRESYNCOPE [None]
  - RESPIRATORY ARREST [None]
  - SUICIDAL IDEATION [None]
  - SYNCOPE [None]
  - TACHYCARDIA [None]
  - TOXIC ENCEPHALOPATHY [None]
  - UNRESPONSIVE TO STIMULI [None]
